FAERS Safety Report 9611784 (Version 3)
Quarter: 2013Q4

REPORT INFORMATION
  Report Type: Spontaneous
  Country: FR (occurrence: FR)
  Receive Date: 20131010
  Receipt Date: 20131017
  Transmission Date: 20140711
  Serious: Yes (Hospitalization)
  Sender: FDA-Public Use
  Company Number: FR-JNJFOC-JACFRA1999000163

PATIENT
  Age: 68 Year
  Sex: Female

DRUGS (6)
  1. GYNO-PEVARYL [Suspect]
     Indication: PRODUCT USED FOR UNKNOWN INDICATION
     Route: 067
     Dates: start: 19990604, end: 19990614
  2. SINTROM [Interacting]
     Indication: PRODUCT USED FOR UNKNOWN INDICATION
     Route: 048
     Dates: start: 19961201, end: 19990627
  3. TAHOR [Suspect]
     Indication: PRODUCT USED FOR UNKNOWN INDICATION
     Route: 048
     Dates: start: 19990617
  4. PEVARYL [Suspect]
     Indication: PRODUCT USED FOR UNKNOWN INDICATION
     Route: 003
     Dates: start: 19990604, end: 19990614
  5. AMLOR [Concomitant]
     Route: 048
     Dates: start: 1997
  6. LASILIX [Concomitant]
     Route: 048
     Dates: start: 1997

REACTIONS (3)
  - Melaena [Recovered/Resolved]
  - Prothrombin time prolonged [Recovered/Resolved]
  - Drug interaction [Recovered/Resolved]
